FAERS Safety Report 12162678 (Version 2)
Quarter: 2016Q1

REPORT INFORMATION
  Report Type: Report from Study
  Country: VE (occurrence: VE)
  Receive Date: 20160309
  Receipt Date: 20160317
  Transmission Date: 20160526
  Serious: No
  Sender: FDA-Public Use
  Company Number: PHHY2016VE031662

PATIENT
  Sex: Male

DRUGS (6)
  1. VITAMIN B6 [Concomitant]
     Active Substance: PYRIDOXINE HYDROCHLORIDE
     Indication: INFARCTION
     Dosage: UNK
     Route: 065
  2. ASPIRIN                            /00346701/ [Concomitant]
     Active Substance: ASCORBIC ACID\ASPIRIN
     Indication: INFARCTION
     Dosage: 100 MG, UNK
     Route: 065
  3. SIMVASTATIN. [Concomitant]
     Active Substance: SIMVASTATIN
     Indication: INFARCTION
     Dosage: 40 MG, UNK
     Route: 065
  4. VITAMIN B12 [Concomitant]
     Active Substance: CYANOCOBALAMIN
     Indication: INFARCTION
     Dosage: UNK
     Route: 065
  5. TASIGNA [Suspect]
     Active Substance: NILOTINIB
     Indication: CHRONIC MYELOID LEUKAEMIA
     Dosage: 3 DF OF 200 MG, QD
     Route: 048
     Dates: end: 20160302
  6. ATENOLOL. [Concomitant]
     Active Substance: ATENOLOL
     Indication: INFARCTION
     Dosage: 100 MG, QD
     Route: 065

REACTIONS (2)
  - Red blood cell count increased [Unknown]
  - White blood cell count increased [Unknown]
